FAERS Safety Report 15047696 (Version 2)
Quarter: 2018Q2

REPORT INFORMATION
  Report Type: Spontaneous
  Country: US (occurrence: US)
  Receive Date: 20180621
  Receipt Date: 20180626
  Transmission Date: 20180711
  Serious: Yes (Other)
  Sender: FDA-Public Use
  Company Number: US-CELGENEUS-USA-20180606173

PATIENT
  Sex: Male
  Weight: 93 kg

DRUGS (3)
  1. OTEZLA [Suspect]
     Active Substance: APREMILAST
     Dosage: 20 MILLIGRAM
     Route: 048
  2. OTEZLA [Suspect]
     Active Substance: APREMILAST
     Indication: PSORIASIS
     Dosage: 15 MILLIGRAM
     Route: 048
  3. OTEZLA [Suspect]
     Active Substance: APREMILAST
     Dosage: 30 MILLIGRAM
     Route: 048

REACTIONS (11)
  - Dyspepsia [Not Recovered/Not Resolved]
  - Gastric ulcer [Not Recovered/Not Resolved]
  - Diarrhoea [Not Recovered/Not Resolved]
  - Retching [Not Recovered/Not Resolved]
  - Gastric disorder [Not Recovered/Not Resolved]
  - Haematemesis [Not Recovered/Not Resolved]
  - Influenza like illness [Not Recovered/Not Resolved]
  - Feeling hot [Not Recovered/Not Resolved]
  - Hyperhidrosis [Not Recovered/Not Resolved]
  - Abdominal pain upper [Not Recovered/Not Resolved]
  - Vomiting [Not Recovered/Not Resolved]
